FAERS Safety Report 10520030 (Version 2)
Quarter: 2014Q4

REPORT INFORMATION
  Report Type: Spontaneous
  Country: US (occurrence: US)
  Receive Date: 20141015
  Receipt Date: 20141015
  Transmission Date: 20150528
  Serious: Yes (Other)
  Sender: FDA-Public Use
  Company Number: US-ABBVIE-14P-163-1216749-00

PATIENT
  Age: 43 Year
  Sex: Female
  Weight: 59.02 kg

DRUGS (1)
  1. HUMIRA [Suspect]
     Active Substance: ADALIMUMAB
     Indication: PRODUCT USED FOR UNKNOWN INDICATION
     Route: 058
     Dates: start: 2009

REACTIONS (9)
  - Albumin globulin ratio decreased [Unknown]
  - Bacterial test positive [Unknown]
  - Monoclonal gammopathy [Not Recovered/Not Resolved]
  - Blood urine present [Recovered/Resolved]
  - Monoclonal immunoglobulin present [Unknown]
  - Hypergammaglobulinaemia [Not Recovered/Not Resolved]
  - Monocyte count increased [Unknown]
  - Mean cell haemoglobin concentration increased [Unknown]
  - White blood cells urine positive [Unknown]

NARRATIVE: CASE EVENT DATE: 201401
